FAERS Safety Report 6178251-8 (Version None)
Quarter: 2009Q2

REPORT INFORMATION
  Report Type: 
  Country: None (occurrence: None)
  Receive Date: 20090504
  Receipt Date: 20090424
  Transmission Date: 20091009
  Serious: Yes (Death, Hospitalization)
  Sender: FDA-Public Use
  Company Number: A0781152A

PATIENT
  Age: 92 Year
  Sex: Female

DRUGS (8)
  1. AVANDIA [Suspect]
     Dosage: 4MG PER DAY
     Dates: start: 20000101, end: 20060101
  2. VERAPAMIL [Concomitant]
  3. TORSEMIDE [Concomitant]
  4. POTASSIUM CHLORIDE [Concomitant]
  5. OXYCONTIN [Concomitant]
     Indication: BACK PAIN
  6. PREDNISONE [Concomitant]
  7. FOSAMAX [Concomitant]
  8. ACIPHEX [Concomitant]
     Indication: ILL-DEFINED DISORDER

REACTIONS (3)
  - ANAEMIA [None]
  - CARDIAC FAILURE CONGESTIVE [None]
  - OEDEMA [None]
